FAERS Safety Report 16238520 (Version 2)
Quarter: 2019Q3

REPORT INFORMATION
  Report Type: Spontaneous
  Country: JP (occurrence: JP)
  Receive Date: 20190425
  Receipt Date: 20190712
  Transmission Date: 20191004
  Serious: Yes (Hospitalization, Other)
  Sender: FDA-Public Use
  Company Number: JP-ASTRAZENECA-2019SE62427

PATIENT
  Age: 53 Year
  Sex: Male

DRUGS (18)
  1. SEROQUEL [Suspect]
     Active Substance: QUETIAPINE FUMARATE
     Indication: SCHIZOPHRENIA
     Dosage: 600 MG DIVIDED INTO 3, THRICE DAILY
     Route: 048
     Dates: start: 20140705, end: 20151121
  2. SEROQUEL [Suspect]
     Active Substance: QUETIAPINE FUMARATE
     Indication: SCHIZOPHRENIA
     Dosage: 700 MG DIVIDED INTO 4, 4 TIMES DAILY
     Route: 048
     Dates: start: 20180418
  3. ZYPREXA [Suspect]
     Active Substance: OLANZAPINE
     Indication: ANXIETY DISORDER
     Route: 048
     Dates: start: 20181121, end: 20190301
  4. SEROQUEL [Suspect]
     Active Substance: QUETIAPINE FUMARATE
     Indication: SCHIZOPHRENIA
     Dosage: 500 MG DIVIDED INTO 2, TWICE DAILY
     Route: 048
     Dates: start: 20121208, end: 20121222
  5. SEROQUEL [Suspect]
     Active Substance: QUETIAPINE FUMARATE
     Indication: SCHIZOPHRENIA
     Dosage: 500 MG DIVIDED INTO 4, 4 TIMES DAILY
     Route: 048
     Dates: start: 20171101, end: 20180110
  6. SEROQUEL [Suspect]
     Active Substance: QUETIAPINE FUMARATE
     Indication: SCHIZOPHRENIA
     Route: 048
     Dates: start: 20110709, end: 20110723
  7. SEROQUEL [Suspect]
     Active Substance: QUETIAPINE FUMARATE
     Indication: SCHIZOPHRENIA
     Route: 048
     Dates: start: 20111119, end: 20120107
  8. SEROQUEL [Suspect]
     Active Substance: QUETIAPINE FUMARATE
     Indication: SCHIZOPHRENIA
     Dosage: 600 MG DIVIDED INTO 5, 5 TIMES DAILY
     Route: 048
     Dates: start: 20161104, end: 20171101
  9. ZYPREXA [Suspect]
     Active Substance: OLANZAPINE
     Indication: DECREASED ACTIVITY
     Route: 048
     Dates: start: 20181121, end: 20190301
  10. SEROQUEL [Suspect]
     Active Substance: QUETIAPINE FUMARATE
     Indication: SCHIZOPHRENIA
     Dosage: 500 MG DIVIDED INTO 3, THRICE DAILY
     Route: 048
     Dates: start: 20121222, end: 20140705
  11. SEROQUEL [Suspect]
     Active Substance: QUETIAPINE FUMARATE
     Indication: SCHIZOPHRENIA
     Dosage: 500 MG DIVIDED INTO 4, 4 TIMES DAILY
     Route: 048
     Dates: start: 20151121, end: 20161104
  12. SEROQUEL [Suspect]
     Active Substance: QUETIAPINE FUMARATE
     Indication: SCHIZOPHRENIA
     Dosage: 600 MG DIVIDED INTO 4, 4 TIMES DAILY
     Route: 048
     Dates: start: 20180110, end: 20180418
  13. ZYPREXA [Suspect]
     Active Substance: OLANZAPINE
     Indication: DECREASED ACTIVITY
     Route: 048
     Dates: start: 20180928, end: 20181024
  14. ZYPREXA [Suspect]
     Active Substance: OLANZAPINE
     Indication: ANXIETY DISORDER
     Route: 048
     Dates: start: 20181024, end: 20181121
  15. SEROQUEL [Suspect]
     Active Substance: QUETIAPINE FUMARATE
     Indication: SCHIZOPHRENIA
     Route: 048
     Dates: start: 20110723, end: 20111119
  16. ZYPREXA [Suspect]
     Active Substance: OLANZAPINE
     Indication: ANXIETY DISORDER
     Route: 048
     Dates: start: 20180928, end: 20181024
  17. SEROQUEL [Suspect]
     Active Substance: QUETIAPINE FUMARATE
     Indication: SCHIZOPHRENIA
     Dosage: 400 MG DIVIDED INTO 2, TWICE DAILY
     Route: 048
     Dates: start: 20120107, end: 20121208
  18. ZYPREXA [Suspect]
     Active Substance: OLANZAPINE
     Indication: DECREASED ACTIVITY
     Route: 048
     Dates: start: 20181024, end: 20181121

REACTIONS (2)
  - Off label use [Unknown]
  - Diabetic ketoacidosis [Recovering/Resolving]

NARRATIVE: CASE EVENT DATE: 20190207
